FAERS Safety Report 8801551 (Version 1)
Quarter: 2012Q4

REPORT INFORMATION
  Report Type: 
  Country: TW (occurrence: TW)
  Receive Date: 20120921
  Receipt Date: 20120921
  Transmission Date: 20130627
  Serious: Yes (Other)
  Sender: FDA-Public Use
  Company Number: TW-JNJFOC-20120904996

PATIENT
  Age: 55 Year
  Sex: Male
  Weight: 76 kg

DRUGS (7)
  1. GOLIMUMAB [Suspect]
     Indication: ANKYLOSING SPONDYLITIS
     Route: 058
  2. HUMIRA [Suspect]
     Indication: ANKYLOSING SPONDYLITIS
     Route: 065
     Dates: start: 201108
  3. ARCOXIA [Concomitant]
     Route: 065
  4. DELTA-PRENIN [Concomitant]
     Route: 065
  5. DISEASE MODIFYING ANTIRHEUMATIC DRUGS [Concomitant]
     Route: 065
  6. SALAZOPYRINE [Concomitant]
     Route: 065
  7. NSAIDS [Concomitant]
     Route: 065

REACTIONS (1)
  - Latent tuberculosis [Unknown]
